FAERS Safety Report 23086608 (Version 1)
Quarter: 2023Q4

REPORT INFORMATION
  Report Type: Spontaneous
  Country: US (occurrence: US)
  Receive Date: 20231019
  Receipt Date: 20231019
  Transmission Date: 20240110
  Serious: No
  Sender: FDA-Public Use
  Company Number: US-JNJFOC-20231043946

PATIENT
  Age: 78 Year
  Sex: Female
  Weight: 68 kg

DRUGS (18)
  1. OPSUMIT [Suspect]
     Active Substance: MACITENTAN
     Indication: Product used for unknown indication
     Route: 048
  2. ORENITRAM [Suspect]
     Active Substance: TREPROSTINIL
     Indication: Pulmonary arterial hypertension
     Route: 048
     Dates: start: 20210517
  3. ORENITRAM [Suspect]
     Active Substance: TREPROSTINIL
     Route: 048
  4. ALBUTEROL SULFATE [Concomitant]
     Active Substance: ALBUTEROL SULFATE
  5. ATORVASTATIN CALCIUM [Concomitant]
     Active Substance: ATORVASTATIN CALCIUM
  6. FUROSEMIDE [Concomitant]
     Active Substance: FUROSEMIDE
  7. POTASSIUM [Concomitant]
     Active Substance: POTASSIUM
  8. TYLENOL [Concomitant]
     Active Substance: ACETAMINOPHEN
  9. ADCIRCA [Concomitant]
     Active Substance: TADALAFIL
  10. OXYGEN [Concomitant]
     Active Substance: OXYGEN
  11. COLESTIPOL [Concomitant]
     Active Substance: COLESTIPOL
  12. GABAPENTIN [Concomitant]
     Active Substance: GABAPENTIN
  13. FOLIC ACID [Concomitant]
     Active Substance: FOLIC ACID
  14. NORVASC [Concomitant]
     Active Substance: AMLODIPINE BESYLATE
  15. BYDUREON [Concomitant]
     Active Substance: EXENATIDE
  16. SYNJARDY [Concomitant]
     Active Substance: EMPAGLIFLOZIN\METFORMIN HYDROCHLORIDE
  17. HYDROCHLOROTHIAZIDE [Concomitant]
     Active Substance: HYDROCHLOROTHIAZIDE
  18. FISH OIL [Concomitant]
     Active Substance: FISH OIL

REACTIONS (2)
  - Sinusitis [Recovered/Resolved]
  - Nasal congestion [Not Recovered/Not Resolved]

NARRATIVE: CASE EVENT DATE: 20230906
